FAERS Safety Report 17354511 (Version 1)
Quarter: 2020Q1

REPORT INFORMATION
  Report Type: Spontaneous
  Country: NL (occurrence: NL)
  Receive Date: 20200131
  Receipt Date: 20200131
  Transmission Date: 20200409
  Serious: Yes (Death, Life-Threatening, Hospitalization, Other)
  Sender: FDA-Public Use
  Company Number: NL-HIKMA PHARMACEUTICALS USA INC.-NL-H14001-20-50515

PATIENT
  Age: 48 Year
  Sex: Male

DRUGS (10)
  1. TOBRAMYCIN. [Suspect]
     Active Substance: TOBRAMYCIN
     Indication: INFECTION PROPHYLAXIS
     Dosage: SELECTIVE DECONTAMINATION OF THE DIGESTIVE TRACT (SDD) REGIMEN ON THE INTENSIVE CARE UNIT (ICU) C...
     Route: 065
  2. AMPHOTERICIN B. [Suspect]
     Active Substance: AMPHOTERICIN B
     Indication: INFECTION PROPHYLAXIS
     Dosage: SELECTIVE DECONTAMINATION OF THE DIGESTIVE TRACT (SDD) REGIMEN ON THE INTENSIVE CARE UNIT (ICU) C...
     Route: 065
  3. PIPERACILLIN AND TAZOBACTAM [Suspect]
     Active Substance: PIPERACILLIN SODIUM\TAZOBACTAM SODIUM
     Indication: PROPHYLAXIS
     Route: 042
  4. HYDROCORTISONE. [Suspect]
     Active Substance: HYDROCORTISONE
     Indication: IMMUNOSUPPRESSANT DRUG THERAPY
     Route: 041
  5. CEFTRIAXONE. [Suspect]
     Active Substance: CEFTRIAXONE
     Indication: ESCHERICHIA PERITONITIS
     Route: 042
  6. FLUCONAZOLE. [Suspect]
     Active Substance: FLUCONAZOLE
     Indication: PROPHYLAXIS
     Route: 042
  7. POLYMYXIN B. [Suspect]
     Active Substance: POLYMYXIN B
     Indication: INFECTION PROPHYLAXIS
     Dosage: SELECTIVE DECONTAMINATION OF THE DIGESTIVE TRACT (SDD) REGIMEN ON THE INTENSIVE CARE UNIT (ICU) C...
     Route: 065
  8. BASILIXIMAB [Suspect]
     Active Substance: BASILIXIMAB
     Indication: IMMUNOSUPPRESSANT DRUG THERAPY
     Dosage: ON DAY 0 AND DAY 4 AFTER TRANSPLANTATION
     Route: 042
  9. AMPHOTERICIN B. [Suspect]
     Active Substance: AMPHOTERICIN B
     Indication: PROPHYLAXIS
     Route: 042
  10. MEROPENEM. [Suspect]
     Active Substance: MEROPENEM
     Indication: PERITONITIS BACTERIAL
     Route: 042

REACTIONS (5)
  - Cholangitis infective [Not Recovered/Not Resolved]
  - Pathogen resistance [Fatal]
  - Multiple organ dysfunction syndrome [Fatal]
  - Abdominal compartment syndrome [Not Recovered/Not Resolved]
  - Trichosporon infection [Fatal]
